FAERS Safety Report 7345342-5 (Version None)
Quarter: 2011Q1

REPORT INFORMATION
  Report Type: 
  Country: None (occurrence: None)
  Receive Date: 20110310
  Receipt Date: 20110301
  Transmission Date: 20110831
  Serious: Yes (Other)
  Sender: FDA-Public Use
  Company Number: US-ELI_LILLY_AND_COMPANY-US201103000929

PATIENT
  Sex: Female

DRUGS (7)
  1. LOSARTAN POTASSIUM [Concomitant]
  2. AMLODIPINE [Concomitant]
  3. VITAMIN D [Concomitant]
  4. CALCIUM W/VITAMIN D NOS [Concomitant]
  5. EVISTA [Suspect]
     Indication: OSTEOPOROSIS
     Dosage: 60 MG, DAILY (1/D)
  6. ASCORBIC ACID [Concomitant]
  7. IRON [Concomitant]

REACTIONS (6)
  - TIBIA FRACTURE [None]
  - BONE DENSITY DECREASED [None]
  - FALL [None]
  - ARTHRALGIA [None]
  - OEDEMA PERIPHERAL [None]
  - MITRAL VALVE PROLAPSE [None]
